FAERS Safety Report 6495574-3 (Version None)
Quarter: 2009Q4

REPORT INFORMATION
  Report Type: 
  Country: None (occurrence: None)
  Receive Date: 20091214
  Receipt Date: 20090716
  Transmission Date: 20100525
  Serious: No
  Sender: FDA-Public Use
  Company Number: US-BRISTOL-MYERS SQUIBB COMPANY-14704613

PATIENT
  Age: 30 Year
  Sex: Male
  Weight: 93 kg

DRUGS (8)
  1. ABILIFY [Suspect]
     Indication: SCHIZOAFFECTIVE DISORDER
     Route: 065
  2. ABILIFY [Suspect]
     Indication: BIPOLAR DISORDER
     Route: 065
  3. DEPAKOTE ER [Suspect]
     Indication: BIPOLAR DISORDER
     Dosage: STARTED WITH UNK DOSE,  25JUN09 DOSE INCREASED TO 1500 MG/D
     Route: 048
     Dates: start: 20090501
  4. DEPAKOTE ER [Suspect]
     Indication: SCHIZOAFFECTIVE DISORDER
     Dosage: STARTED WITH UNK DOSE,  25JUN09 DOSE INCREASED TO 1500 MG/D
     Route: 048
     Dates: start: 20090501
  5. BUSPIRONE HCL [Concomitant]
     Indication: SCHIZOAFFECTIVE DISORDER
  6. BUSPIRONE HCL [Concomitant]
     Indication: BIPOLAR DISORDER
  7. FAMOTIDINE [Concomitant]
  8. MULTIPLE VITAMINS [Concomitant]

REACTIONS (2)
  - ANXIETY [None]
  - WEIGHT INCREASED [None]
